FAERS Safety Report 8884429 (Version 2)
Quarter: 2012Q4

REPORT INFORMATION
  Report Type: 
  Country: US (occurrence: US)
  Receive Date: 20121102
  Receipt Date: 20121102
  Transmission Date: 20130627
  Serious: No
  Sender: FDA-Public Use
  Company Number: US-ASTRAZENECA-2012SE23849

PATIENT
  Age: 31256 Day
  Sex: Female

DRUGS (2)
  1. CRESTOR [Suspect]
     Indication: BLOOD CHOLESTEROL ABNORMAL
     Route: 048
  2. OTHER MEDICATIONS [Concomitant]

REACTIONS (5)
  - Back pain [Unknown]
  - Malaise [Unknown]
  - Weight decreased [Unknown]
  - Mobility decreased [Unknown]
  - Myalgia [Unknown]
